FAERS Safety Report 8693090 (Version 3)
Quarter: 2012Q4

REPORT INFORMATION
  Report Type: 
  Country: US (occurrence: US)
  Receive Date: 20120730
  Receipt Date: 20121001
  Transmission Date: 20130627
  Serious: Yes (Other)
  Sender: FDA-Public Use
  Company Number: PHEH2012US014754

PATIENT
  Age: 33 None
  Sex: Female
  Weight: 118.82 kg

DRUGS (24)
  1. GILENYA [Suspect]
     Indication: MULTIPLE SCLEROSIS
     Dosage: 0.5 mg, QD
     Route: 048
     Dates: start: 20120105
  2. LIORESAL [Concomitant]
     Indication: MUSCLE SPASMS
     Dosage: 20 mg, QID as needed
     Route: 048
  3. LIORESAL [Concomitant]
     Dosage: 10 mg, 2-3 times PRN
  4. DESYREL [Concomitant]
     Indication: INSOMNIA
     Dosage: 1-2 tablets
  5. DESYREL [Concomitant]
     Dosage: 50 mg, 1-2  tablets QHS
  6. DITROPAN [Concomitant]
     Dosage: 5 mg, tablet
     Route: 048
  7. ADDERALL [Concomitant]
     Dosage: 2 DF, QD
     Route: 048
  8. ZESTRIL [Concomitant]
     Dosage: 10 mg, UNK
     Route: 048
  9. LYRICA [Concomitant]
     Dosage: 50 mg, one tablet in am 3 tablets at bed time
  10. LYRICA [Concomitant]
     Dosage: 25 mg, 1-3 tablets during day as needed
  11. EFEXOR XR [Concomitant]
     Dosage: 150 mg, QD
     Route: 048
  12. PRILOSEC [Concomitant]
     Dosage: 40 mg, QD
     Route: 048
  13. VOLTAREN [Concomitant]
     Dosage: 2 g, QID PRN
  14. MIRALAX [Concomitant]
  15. ZONEGRAN [Concomitant]
     Dosage: 100 mg, nightly
     Route: 048
  16. DILANTIN [Concomitant]
     Dosage: 100 mg, 3 capsules at bed time
  17. XANAX [Concomitant]
     Indication: NERVOUSNESS
     Dosage: 0.5 mg, QID as needed
     Route: 048
  18. XANAX [Concomitant]
     Indication: PARAESTHESIA
  19. XANAX [Concomitant]
     Indication: MUSCLE SPASMS
  20. XANAX [Concomitant]
     Indication: INSOMNIA
  21. CALAN [Concomitant]
     Dosage: 40 mg, half tab BID hold 1dose if BP{100/60, Ps,{55
  22. ULTRAM [Concomitant]
     Indication: PAIN
     Dosage: 50 mg, QID as needed
     Route: 048
  23. ATIVAN [Concomitant]
     Indication: MUSCLE SPASMS
     Dosage: 0.5 mg, 1 tablet daily as needed
     Route: 048
  24. XYLOCAINE [Concomitant]
     Route: 061

REACTIONS (6)
  - Blindness transient [Recovered/Resolved]
  - Visual impairment [Recovered/Resolved]
  - Nausea [Unknown]
  - Vision blurred [Recovered/Resolved]
  - Headache [Unknown]
  - Hypertension [Unknown]
